FAERS Safety Report 9680780 (Version 3)
Quarter: 2014Q1

REPORT INFORMATION
  Report Type: Spontaneous
  Country: JP (occurrence: JP)
  Receive Date: 20131111
  Receipt Date: 20140303
  Transmission Date: 20141002
  Serious: Yes (Death, Other)
  Sender: FDA-Public Use
  Company Number: PHHY2013JP122901

PATIENT
  Sex: 0
  Weight: 10 kg

DRUGS (10)
  1. SIMULECT [Suspect]
     Indication: LIVER AND SMALL INTESTINE TRANSPLANT
     Dosage: 10 MG, UNK
     Route: 042
  2. SIMULECT [Suspect]
     Indication: OFF LABEL USE
     Dosage: 10 MG, UNK
     Route: 042
  3. SIMULECT [Suspect]
     Dosage: 10 MG, UNK
     Route: 042
  4. TACROLIMUS [Suspect]
     Indication: IMMUNOSUPPRESSION
     Dosage: UNK
     Route: 042
  5. TACROLIMUS [Suspect]
     Indication: LIVER AND SMALL INTESTINE TRANSPLANT
  6. ENDOXAN [Suspect]
     Indication: IMMUNOSUPPRESSION
     Dosage: UNK
  7. ORTHOCLONE OKT 3 [Suspect]
     Dosage: UNK
  8. CORTICOSTEROIDS [Suspect]
     Indication: IMMUNOSUPPRESSION
     Dosage: UNK
  9. ACYCLOVIR [Concomitant]
     Dosage: UNK
  10. VIDARABINE [Concomitant]
     Dosage: UNK

REACTIONS (4)
  - Multi-organ failure [Fatal]
  - Post transplant lymphoproliferative disorder [Fatal]
  - Epstein-Barr virus infection [Unknown]
  - Transplant rejection [Unknown]
